FAERS Safety Report 13023401 (Version 1)
Quarter: 2016Q4

REPORT INFORMATION
  Report Type: Spontaneous
  Country: US (occurrence: US)
  Receive Date: 20161211
  Receipt Date: 20161211
  Transmission Date: 20170207
  Serious: Yes (Other)
  Sender: FDA-Public Use
  Company Number: None

PATIENT
  Age: 62 Year
  Sex: Male
  Weight: 74.25 kg

DRUGS (7)
  1. MELOXICAM. [Suspect]
     Active Substance: MELOXICAM
     Indication: OSTEOARTHRITIS
     Dosage: ?          QUANTITY:1 TABLET(S);?
     Route: 048
     Dates: start: 20161130, end: 20161201
  2. GLUCOSAMINE [Concomitant]
     Active Substance: GLUCOSAMINE
  3. LEVOTHYROXIN [Concomitant]
     Active Substance: LEVOTHYROXINE
  4. CHONDROITIN [Concomitant]
     Active Substance: CHONDROITIN
  5. MULTIVITAMIN [Concomitant]
     Active Substance: VITAMINS
  6. LOW DOSE ASPIRIN [Concomitant]
     Active Substance: ASPIRIN
  7. CRESTOR [Concomitant]
     Active Substance: ROSUVASTATIN CALCIUM

REACTIONS (3)
  - Headache [None]
  - Flushing [None]
  - Skin exfoliation [None]

NARRATIVE: CASE EVENT DATE: 20161130
